FAERS Safety Report 4727186-3 (Version None)
Quarter: 2005Q3

REPORT INFORMATION
  Report Type: 
  Country: None (occurrence: None)
  Receive Date: 20050726
  Receipt Date: 20050726
  Transmission Date: 20060218
  Serious: Yes (Other)
  Sender: FDA-Public Use
  Company Number: None

PATIENT
  Age: 63 Year
  Sex: Male
  Weight: 92.8 kg

DRUGS (12)
  1. TERAZOSIN [Suspect]
  2. COUMADIN [Concomitant]
  3. FINASTERIDE [Concomitant]
  4. OXYCODONE 5MG/ACETAMINOPHEN [Concomitant]
  5. LEVOTHYROXINE SODIUM [Concomitant]
  6. ATENOLOL [Concomitant]
  7. HYDROCHLOROTHIAZIDE [Concomitant]
  8. TERAZOSIN HCL [Concomitant]
  9. ISOSORBIDE MONONITRATE [Concomitant]
  10. FELODIPINE [Concomitant]
  11. SIMVASTATIN [Concomitant]
  12. LISINOPRIL [Concomitant]

REACTIONS (1)
  - HYPOTENSION [None]
